FAERS Safety Report 24214935 (Version 2)
Quarter: 2024Q3

REPORT INFORMATION
  Report Type: Spontaneous
  Country: US (occurrence: US)
  Receive Date: 20240815
  Receipt Date: 20240828
  Transmission Date: 20241017
  Serious: Yes (Other)
  Sender: BLUEPRINT MEDICINES
  Company Number: US-Blueprint Medicines Corporation-4440

PATIENT
  Age: 71 Year
  Sex: Male

DRUGS (1)
  1. AYVAKIT [Suspect]
     Active Substance: AVAPRITINIB
     Indication: Systemic mastocytosis
     Route: 048

REACTIONS (1)
  - Cataract [Unknown]

NARRATIVE: CASE EVENT DATE: 20240807
